FAERS Safety Report 8839217 (Version 2)
Quarter: 2012Q4

REPORT INFORMATION
  Report Type: 
  Country: ES (occurrence: ES)
  Receive Date: 20121015
  Receipt Date: 20121119
  Transmission Date: 20130627
  Serious: Yes (Death, Hospitalization)
  Sender: FDA-Public Use
  Company Number: ES-SHIRE-SPV1-2012-00896

PATIENT
  Age: 45 Year
  Sex: Female

DRUGS (5)
  1. XAGRID [Suspect]
     Indication: ESSENTIAL THROMBOCYTHAEMIA
     Dosage: 0.5 mg, 2x/day:bid
     Route: 048
     Dates: start: 200806
  2. XAGRID [Suspect]
     Dosage: 0.5 mg, 4x/day:qid
     Route: 048
  3. DIOSMINA EG [Concomitant]
     Indication: HYPERTENSION
     Dosage: UNK, Unknown
     Route: 065
  4. ALLOPURINOL [Concomitant]
     Indication: PRODUCT USED FOR UNKNOWN INDICATION
     Dosage: UNK, Unknown
     Route: 065
  5. DAFLON                             /00426001/ [Concomitant]
     Indication: PRODUCT USED FOR UNKNOWN INDICATION
     Dosage: UNK, Unknown
     Route: 065

REACTIONS (5)
  - Acute pulmonary oedema [Fatal]
  - Cardiac arrest [Fatal]
  - Muscle spasms [Unknown]
  - Blood pressure inadequately controlled [Unknown]
  - Drug dose omission [Unknown]
